FAERS Safety Report 5047920-5 (Version None)
Quarter: 2006Q3

REPORT INFORMATION
  Report Type: 
  Country: None (occurrence: None)
  Receive Date: 20060711
  Receipt Date: 20060703
  Transmission Date: 20061208
  Serious: Yes (Other)
  Sender: FDA-Public Use
  Company Number: JP-JPN-A200602440

PATIENT
  Age: 64 Year
  Sex: Male

DRUGS (6)
  1. ZEFIX [Suspect]
     Indication: HEPATITIS B
     Dosage: 100MG PER DAY
     Route: 048
     Dates: start: 20041201
  2. DIOVAN [Concomitant]
     Route: 048
  3. CONIEL [Concomitant]
     Route: 048
  4. MEVALOTIN [Concomitant]
     Route: 048
  5. BASEN [Concomitant]
     Route: 048
  6. ASPIRIN [Concomitant]
     Route: 048

REACTIONS (1)
  - DIABETES MELLITUS [None]
